FAERS Safety Report 11290801 (Version 1)
Quarter: 2015Q3

REPORT INFORMATION
  Report Type: Spontaneous
  Country: VE (occurrence: None)
  Receive Date: 20150720
  Receipt Date: 20150720
  Transmission Date: 20151125
  Serious: Yes (Hospitalization)
  Sender: FDA-Public Use
  Company Number: ADR-2015-01345

PATIENT
  Sex: Female

DRUGS (4)
  1. LIORESAL [Suspect]
     Active Substance: BACLOFEN
     Indication: MUSCLE SPASTICITY
     Dosage: 30 MG QD GASTRIC DRIP
  2. SINEMET-CR (CARBIDOPA, LEVODOPA) [Concomitant]
  3. LIORESAL [Suspect]
     Active Substance: BACLOFEN
     Indication: MUSCLE SPASTICITY
     Dosage: 10 MG QD GASTRIC DRIP
     Dates: start: 200606
  4. PHENOBARBITAL. [Concomitant]
     Active Substance: PHENOBARBITAL

REACTIONS (16)
  - Muscle spasticity [None]
  - Cardiovascular disorder [None]
  - Device related infection [None]
  - Skin graft failure [None]
  - Feeling abnormal [None]
  - Skin graft [None]
  - Hypokinesia [None]
  - Aphasia [None]
  - Muscle spasms [None]
  - Accident [None]
  - Loss of consciousness [None]
  - Pneumonia [None]
  - Respiratory tract infection [None]
  - Fall [None]
  - Wheelchair user [None]
  - Intraventricular haemorrhage [None]
